FAERS Safety Report 4934704-9 (Version None)
Quarter: 2006Q1

REPORT INFORMATION
  Report Type: 
  Country: None (occurrence: None)
  Receive Date: 20060307
  Receipt Date: 20051003
  Transmission Date: 20060701
  Serious: Yes (Hospitalization)
  Sender: FDA-Public Use
  Company Number: US-MERCK-0510USA02576

PATIENT
  Age: 45 Year
  Sex: Male
  Weight: 123 kg

DRUGS (1)
  1. VIOXX [Suspect]
     Indication: PAIN MANAGEMENT
     Route: 048
     Dates: start: 20020205, end: 20030715

REACTIONS (4)
  - CARDIOVASCULAR DISORDER [None]
  - INTERVERTEBRAL DISC PROTRUSION [None]
  - LOWER LIMB DEFORMITY [None]
  - MYOCARDIAL INFARCTION [None]
